FAERS Safety Report 9678187 (Version 2)
Quarter: 2014Q1

REPORT INFORMATION
  Report Type: Spontaneous
  Country: US (occurrence: None)
  Receive Date: 20131106
  Receipt Date: 20140327
  Transmission Date: 20141002
  Serious: Yes (Hospitalization)
  Sender: FDA-Public Use
  Company Number: UTC-039861

PATIENT
  Age: 45 Year
  Sex: Male
  Weight: 69.27 kg

DRUGS (3)
  1. REMODULIN [Suspect]
     Indication: PULMONARY ARTERIAL HYPERTENSION
     Dosage: 2.88 UG/KG ( 0.002 UG/KG, 1 IN 1 MIN), SUBCUTANEOUS
     Route: 058
     Dates: start: 20131002
  2. LETAIRIS [Suspect]
     Indication: PULMONARY ARTERIAL HYPERTENSION
     Route: 048
     Dates: start: 20131002
  3. VENTAVIS ( ILOPROST) ( UNKNOWN) [Concomitant]

REACTIONS (6)
  - Abdominal pain [None]
  - Nausea [None]
  - Vomiting [None]
  - Fluid retention [None]
  - Decreased appetite [None]
  - Ascites [None]
